FAERS Safety Report 4648628-8 (Version None)
Quarter: 2005Q2

REPORT INFORMATION
  Report Type: 
  Country: None (occurrence: None)
  Receive Date: 20050429
  Receipt Date: 20040624
  Transmission Date: 20051028
  Serious: No
  Sender: FDA-Public Use
  Company Number: US-GLAXOSMITHKLINE-A0515901A

PATIENT

DRUGS (2)
  1. AMERGE [Suspect]
     Indication: ILL-DEFINED DISORDER
  2. NORVASC [Concomitant]

REACTIONS (1)
  - BLOOD PRESSURE DECREASED [None]
